FAERS Safety Report 10847329 (Version 2)
Quarter: 2015Q1

REPORT INFORMATION
  Report Type: Spontaneous
  Country: US (occurrence: US)
  Receive Date: 20150220
  Receipt Date: 20150309
  Transmission Date: 20150721
  Serious: No
  Sender: FDA-Public Use
  Company Number: US-PFIZER INC-2015064693

PATIENT
  Age: 73 Year
  Sex: Female
  Weight: 77 kg

DRUGS (9)
  1. LYRICA [Suspect]
     Active Substance: PREGABALIN
     Indication: EXTREMITY CONTRACTURE
  2. PREMARIN [Concomitant]
     Active Substance: ESTROGENS, CONJUGATED
     Indication: VAGINAL PESSARY INSERTION
     Dosage: 2 MG, WEEKLY
     Route: 067
  3. VITAMIN D [Concomitant]
     Active Substance: CHOLECALCIFEROL
     Indication: VITAMIN SUPPLEMENTATION
     Dosage: 5000 IU, DAILY
     Route: 048
  4. MELOXICAM. [Concomitant]
     Active Substance: MELOXICAM
     Indication: PAIN
     Dosage: 15 MG, UNK
  5. BACLOFEN. [Concomitant]
     Active Substance: BACLOFEN
     Indication: MUSCLE RELAXANT THERAPY
     Dosage: 10 MG, 1X/DAY
  6. LYRICA [Suspect]
     Active Substance: PREGABALIN
     Indication: PAIN
     Dosage: 75 MG, DAILY
     Dates: start: 2009
  7. TRAMADOL [Concomitant]
     Active Substance: TRAMADOL
     Indication: PAIN
     Dosage: 50MG, 8X/DAY DAILY
     Route: 048
  8. LESCOL XL [Concomitant]
     Active Substance: FLUVASTATIN SODIUM
     Indication: BLOOD CHOLESTEROL INCREASED
     Dosage: 80 MG, DAILY
     Route: 048
  9. MIRABEGRON [Concomitant]
     Active Substance: MIRABEGRON
     Indication: INCONTINENCE
     Dosage: 25 MG, DAILY
     Route: 048

REACTIONS (6)
  - Pain [Unknown]
  - Insomnia [Recovering/Resolving]
  - Burning sensation [Recovering/Resolving]
  - Condition aggravated [Unknown]
  - Skin abrasion [Recovering/Resolving]
  - Muscle spasms [Unknown]

NARRATIVE: CASE EVENT DATE: 201502
